FAERS Safety Report 16572841 (Version 1)
Quarter: 2019Q3

REPORT INFORMATION
  Report Type: Report from Study
  Country: None (occurrence: AU)
  Receive Date: 20190715
  Receipt Date: 20190715
  Transmission Date: 20191004
  Serious: Yes (Hospitalization)
  Sender: FDA-Public Use
  Company Number: AU-ABBVIE-19K-008-2844149-00

PATIENT
  Age: 66 Year
  Sex: Female

DRUGS (1)
  1. DUODOPA [Suspect]
     Active Substance: CARBIDOPA\LEVODOPA
     Indication: PARKINSON^S DISEASE
     Dosage: 100ML GEL CASSETTE  16 HOUR INFUSION
     Route: 050
     Dates: start: 20170403, end: 201907

REACTIONS (5)
  - Parkinson^s disease [Unknown]
  - Device occlusion [Unknown]
  - Device breakage [Unknown]
  - Condition aggravated [Unknown]
  - Device dislocation [Unknown]

NARRATIVE: CASE EVENT DATE: 20190703
